FAERS Safety Report 9167847 (Version 2)
Quarter: 2013Q2

REPORT INFORMATION
  Report Type: Spontaneous
  Country: BR (occurrence: BR)
  Receive Date: 20130318
  Receipt Date: 20130422
  Transmission Date: 20140414
  Serious: No
  Sender: FDA-Public Use
  Company Number: PHHY2013BR025863

PATIENT
  Age: 47 Year
  Sex: Female
  Weight: 70 kg

DRUGS (2)
  1. SANDOSTATIN LAR [Suspect]
     Indication: NEUROENDOCRINE TUMOUR
     Dosage: 1 DF, A MONTH
     Route: 058
     Dates: start: 201212
  2. AFINITOR [Concomitant]
     Dosage: 10 MG, UNK

REACTIONS (1)
  - Incorrect route of drug administration [Unknown]
